FAERS Safety Report 4717905-4 (Version None)
Quarter: 2005Q3

REPORT INFORMATION
  Report Type: 
  Country: None (occurrence: None)
  Receive Date: 20050715
  Receipt Date: 20050704
  Transmission Date: 20060218
  Serious: Yes (Other)
  Sender: FDA-Public Use
  Company Number: 2005073219

PATIENT
  Age: 44 Year
  Sex: Female

DRUGS (2)
  1. GENOTROPIN [Suspect]
     Indication: OFF LABEL USE
     Dosage: 0.3 MG (5.3 MG,DAILY)
     Dates: start: 20050212
  2. HYDROCORTISONE ACETATE              (HYDROCORTISONE) [Concomitant]

REACTIONS (4)
  - ADRENAL INSUFFICIENCY [None]
  - DRY SKIN [None]
  - FATIGUE [None]
  - NECK MASS [None]
